FAERS Safety Report 10310885 (Version 1)
Quarter: 2014Q3

REPORT INFORMATION
  Report Type: Spontaneous
  Country: US (occurrence: None)
  Receive Date: 20140716
  Receipt Date: 20140716
  Transmission Date: 20150326
  Serious: Yes (Hospitalization)
  Sender: FDA-Public Use
  Company Number: None

PATIENT
  Age: 58 Year
  Weight: 49 kg

DRUGS (6)
  1. HYDROCODONE ACETAMINOPHEN [Concomitant]
     Active Substance: ACETAMINOPHEN\HYDROCODONE BITARTRATE
  2. MUPIROCIN. [Concomitant]
     Active Substance: MUPIROCIN
  3. ERLOTINIB [Suspect]
     Active Substance: ERLOTINIB
     Indication: TONSIL CANCER
     Route: 048
     Dates: start: 20140619
  4. CHLORHEXIDINE [Concomitant]
     Active Substance: CHLORHEXIDINE
  5. ERYTHROMYCIN. [Concomitant]
     Active Substance: ERYTHROMYCIN
  6. TYLENOL [Concomitant]
     Active Substance: ACETAMINOPHEN

REACTIONS (10)
  - Sepsis [None]
  - Eye infection [None]
  - Conjunctivitis [None]
  - Abscess [None]
  - Tachycardia [None]
  - Pain [None]
  - Diarrhoea [None]
  - Pruritus [None]
  - Febrile neutropenia [None]
  - Nausea [None]

NARRATIVE: CASE EVENT DATE: 20140630
